FAERS Safety Report 20309761 (Version 1)
Quarter: 2022Q1

REPORT INFORMATION
  Report Type: Report from Study
  Country: US (occurrence: US)
  Receive Date: 20220107
  Receipt Date: 20220107
  Transmission Date: 20220424
  Serious: Yes (Other)
  Sender: FDA-Public Use
  Company Number: US-ABBVIE-22K-163-4222627-00

PATIENT
  Sex: Male

DRUGS (2)
  1. CREON [Suspect]
     Active Substance: PANCRELIPASE AMYLASE\PANCRELIPASE LIPASE\PANCRELIPASE PROTEASE
     Indication: Product used for unknown indication
     Dosage: 2 CAPSULES BY MOUTH WITH MEALS
     Route: 048
  2. CREON [Suspect]
     Active Substance: PANCRELIPASE AMYLASE\PANCRELIPASE LIPASE\PANCRELIPASE PROTEASE
     Dosage: 3 CAPSULES BY MOUTH WITH MEALS
     Route: 048

REACTIONS (8)
  - Diabetes mellitus [Unknown]
  - Malabsorption [Unknown]
  - Melaena [Recovering/Resolving]
  - Impaired quality of life [Unknown]
  - Abdominal pain upper [Unknown]
  - Flatulence [Unknown]
  - Diarrhoea [Unknown]
  - Abnormal faeces [Recovering/Resolving]
